FAERS Safety Report 21286136 (Version 3)
Quarter: 2022Q4

REPORT INFORMATION
  Report Type: Spontaneous
  Country: JP (occurrence: JP)
  Receive Date: 20220902
  Receipt Date: 20221025
  Transmission Date: 20230113
  Serious: Yes (Hospitalization)
  Sender: FDA-Public Use
  Company Number: JP-GSKNCCC-Case-01562143_AE-61697

PATIENT

DRUGS (1)
  1. FLUTICASONE FUROATE\VILANTEROL TRIFENATATE [Suspect]
     Active Substance: FLUTICASONE FUROATE\VILANTEROL TRIFENATATE
     Indication: Bronchiectasis
     Dosage: 200 ?G
     Route: 055

REACTIONS (4)
  - Hospitalisation [Unknown]
  - Cough [Unknown]
  - Oral candidiasis [Unknown]
  - Product use in unapproved indication [Unknown]
